FAERS Safety Report 24215746 (Version 5)
Quarter: 2025Q2

REPORT INFORMATION
  Report Type: Spontaneous
  Country: US (occurrence: US)
  Receive Date: 20240816
  Receipt Date: 20250526
  Transmission Date: 20250717
  Serious: No
  Sender: BIOGEN
  Company Number: US-BIOGEN-2024BI01278144

PATIENT
  Sex: Female

DRUGS (1)
  1. TYSABRI [Suspect]
     Active Substance: NATALIZUMAB
     Indication: Multiple sclerosis
     Route: 050
     Dates: start: 20160122

REACTIONS (6)
  - Gait inability [Unknown]
  - Dysstasia [Unknown]
  - Gait disturbance [Unknown]
  - Memory impairment [Unknown]
  - Anxiety [Unknown]
  - Dizziness [Unknown]
